FAERS Safety Report 13750186 (Version 2)
Quarter: 2017Q4

REPORT INFORMATION
  Report Type: Spontaneous
  Country: US (occurrence: US)
  Receive Date: 20170713
  Receipt Date: 20171017
  Transmission Date: 20180320
  Serious: No
  Sender: FDA-Public Use
  Company Number: US-009507513-1707USA001782

PATIENT
  Age: 19 Year
  Sex: Female
  Weight: 80.73 kg

DRUGS (1)
  1. NEXPLANON [Suspect]
     Active Substance: ETONOGESTREL
     Dosage: 1 DF, UNK
     Route: 059
     Dates: start: 20140728

REACTIONS (5)
  - Complication of device removal [Unknown]
  - Complication associated with device [Unknown]
  - Migration of implanted drug [Unknown]
  - Device difficult to use [Unknown]
  - Device deployment issue [Unknown]

NARRATIVE: CASE EVENT DATE: 2017
